FAERS Safety Report 15890303 (Version 3)
Quarter: 2019Q1

REPORT INFORMATION
  Report Type: Report from Study
  Country: None (occurrence: CH)
  Receive Date: 20190130
  Receipt Date: 20190308
  Transmission Date: 20190417
  Serious: Yes (Death, Hospitalization)
  Sender: FDA-Public Use
  Company Number: CH-ABBVIE-17K-151-2108965-00

PATIENT
  Age: 75 Year
  Sex: Male

DRUGS (6)
  1. CYMBALTA [Concomitant]
     Active Substance: DULOXETINE HYDROCHLORIDE
     Indication: PRODUCT USED FOR UNKNOWN INDICATION
     Route: 048
  2. DUODOPA [Suspect]
     Active Substance: CARBIDOPA\LEVODOPA
     Dosage: MD: 4 ML, CRD: 3.6 ML/H, CRN: 3 ML/H, ED: 2.5 ML?24 H THERAPY
     Route: 050
     Dates: start: 20151125, end: 20170912
  3. PK MERZ [Concomitant]
     Active Substance: AMANTADINE SULFATE
     Indication: PRODUCT USED FOR UNKNOWN INDICATION
     Dosage: MORNING, MIDDAY
     Route: 048
  4. DUODOPA [Suspect]
     Active Substance: CARBIDOPA\LEVODOPA
     Indication: PARKINSON^S DISEASE
     Dosage: MD 4.0ML,CR DAY 3.7ML/H, CR NIGHT 3.0ML/H, ED 2.5ML, 24HR
     Route: 050
     Dates: start: 20150310, end: 20151125
  5. MARCOUMAR [Concomitant]
     Active Substance: PHENPROCOUMON
     Indication: PRODUCT USED FOR UNKNOWN INDICATION
     Route: 048
  6. DUODOPA [Suspect]
     Active Substance: CARBIDOPA\LEVODOPA
     Dosage: MD: 4ML, CRD:3.7 ML/H, CRN: 3 ML/H, :ED 2.5 ML 1 CASSETTE PER DAY
     Route: 050
     Dates: start: 20170912, end: 201903

REACTIONS (10)
  - Device connection issue [Recovered/Resolved]
  - Stoma site discharge [Recovered/Resolved]
  - Stoma site hypergranulation [Recovered/Resolved]
  - Application site vesicles [Unknown]
  - Polyneuropathy [Recovering/Resolving]
  - Lung infection [Fatal]
  - Stoma site erythema [Recovered/Resolved]
  - Epilepsy [Fatal]
  - Pneumonia [Unknown]
  - Death [Fatal]

NARRATIVE: CASE EVENT DATE: 201902
